FAERS Safety Report 9451422 (Version 1)
Quarter: 2013Q3

REPORT INFORMATION
  Report Type: Spontaneous
  Country: DE (occurrence: DE)
  Receive Date: 20130809
  Receipt Date: 20130809
  Transmission Date: 20140515
  Serious: Yes (Hospitalization, Other)
  Sender: FDA-Public Use
  Company Number: GXKR2013DE002618

PATIENT
  Sex: 0

DRUGS (4)
  1. BLEOMYCIN [Suspect]
     Dosage: MATERNAL DOSE: 10 [MG/M? ] EVERY THREE WEEKS
     Route: 064
     Dates: start: 20080910, end: 20080929
  2. DOXORUBICIN [Suspect]
     Dosage: MATERNAL DOSE: 25 [MG/M? ] EVERY THREE WEEKS
     Route: 064
     Dates: start: 20080910, end: 20080929
  3. VINBLASTINE SULFATE [Suspect]
     Dosage: MATERNAL DOSE: 6 [MG/M? ] EVERY THREE WEEKS
     Route: 064
     Dates: start: 20080910, end: 20080929
  4. DACARBAZINE [Suspect]
     Dosage: MATERNAL DOSE: 375 [MG/M? ] EVERY THREE WEEKS
     Route: 064
     Dates: start: 20080910, end: 20080929

REACTIONS (5)
  - Neonatal respiratory distress syndrome [Recovered/Resolved]
  - Neonatal hypotension [Recovered/Resolved]
  - Sinus arrest [Recovered/Resolved]
  - Anaemia neonatal [Recovered/Resolved]
  - Leukopenia neonatal [Recovered/Resolved]
